FAERS Safety Report 20317573 (Version 1)
Quarter: 2022Q1

REPORT INFORMATION
  Report Type: Spontaneous
  Country: US (occurrence: None)
  Receive Date: 20220107
  Receipt Date: 20220107
  Transmission Date: 20220424
  Serious: No
  Sender: FDA-Public Use
  Company Number: None

PATIENT
  Age: 42 Year
  Sex: Female
  Weight: 78.75 kg

DRUGS (12)
  1. IBRANCE [Suspect]
     Active Substance: PALBOCICLIB
     Indication: Breast cancer
     Dosage: OTHER FREQUENCY : QD FOR 21/28 DAYS;?
     Route: 048
     Dates: start: 20211021
  2. PROBIOTICS NOS [Concomitant]
     Active Substance: PROBIOTICS NOS
  3. CALCIUM CITRATE [Concomitant]
     Active Substance: CALCIUM CITRATE
  4. Vitamin D3 25mcg [Concomitant]
  5. Apple Cider Vinegar Plus [Concomitant]
  6. ANASTROZOLE [Concomitant]
     Active Substance: ANASTROZOLE
  7. Amox-Clav 125mg [Concomitant]
  8. Zoladex 3.6mg [Concomitant]
  9. UNSPECIFIED INGREDIENT [Concomitant]
     Active Substance: UNSPECIFIED INGREDIENT
  10. IBUPROFEN [Concomitant]
     Active Substance: IBUPROFEN
  11. FAMOTIDINE [Concomitant]
     Active Substance: FAMOTIDINE
  12. Norco 7.5-325mg [Concomitant]

REACTIONS (1)
  - Arthralgia [None]

NARRATIVE: CASE EVENT DATE: 20220107
